FAERS Safety Report 8340924-6 (Version None)
Quarter: 2012Q2

REPORT INFORMATION
  Report Type: 
  Country: None (occurrence: None)
  Receive Date: 20120507
  Receipt Date: 20120430
  Transmission Date: 20120825
  Serious: Yes (Hospitalization)
  Sender: FDA-Public Use
  Company Number: FR-B.I. PHARMACEUTICALS,INC./RIDGEFIELD-2012-FF-00053FF

PATIENT
  Sex: Male

DRUGS (4)
  1. PRAMIPEXOLE DIHYDROCHLORIDE [Suspect]
     Indication: PARKINSON'S DISEASE
     Route: 048
     Dates: start: 20091028, end: 20110101
  2. TRIVASTAL [Concomitant]
     Indication: PARKINSON'S DISEASE
     Dates: end: 20100301
  3. MODOPAR [Suspect]
     Indication: PARKINSON'S DISEASE
     Dosage: 1000 MG
     Dates: start: 20050101, end: 20111207
  4. PRAMIPEXOLE DIHYDROCHLORIDE [Suspect]
     Dosage: 2.1 MG
     Route: 048
     Dates: start: 20110101, end: 20111207

REACTIONS (4)
  - IMPULSE-CONTROL DISORDER [None]
  - HALLUCINATION [None]
  - HYPERSEXUALITY [None]
  - PATHOLOGICAL GAMBLING [None]
